FAERS Safety Report 6491554-2 (Version None)
Quarter: 2009Q4

REPORT INFORMATION
  Report Type: 
  Country: None (occurrence: None)
  Receive Date: 20091125
  Receipt Date: 20090306
  Transmission Date: 20100525
  Serious: Yes (Hospitalization)
  Sender: FDA-Public Use
  Company Number: 2009BH003791

PATIENT
  Age: 67 Year
  Sex: Male
  Weight: 138.8 kg

DRUGS (2)
  1. DIANEAL [Suspect]
     Indication: PERITONEAL DIALYSIS
     Dosage: 19 L ; EVERY DAY ; IP
     Route: 033
     Dates: start: 20080201
  2. EXTRANEAL [Suspect]
     Indication: PERITONEAL DIALYSIS
     Dosage: 2 L ; EVERY DAY ; IP
     Route: 033
     Dates: start: 20080101

REACTIONS (3)
  - ASTHENIA [None]
  - PERITONITIS BACTERIAL [None]
  - PYREXIA [None]
